FAERS Safety Report 7063681-2 (Version None)
Quarter: 2010Q4

REPORT INFORMATION
  Report Type: 
  Country: None (occurrence: None)
  Receive Date: 20101026
  Receipt Date: 20100723
  Transmission Date: 20110411
  Serious: No
  Sender: FDA-Public Use
  Company Number: US-ABBOTT-10P-163-0660158-00

PATIENT
  Sex: Female

DRUGS (1)
  1. LUPRON DEPOT [Suspect]
     Indication: ENDOMETRIOSIS
     Dates: start: 20100303, end: 20100502

REACTIONS (4)
  - AMENORRHOEA [None]
  - HOT FLUSH [None]
  - MAJOR DEPRESSION [None]
  - MIGRAINE [None]
